FAERS Safety Report 13093459 (Version 1)
Quarter: 2017Q1

REPORT INFORMATION
  Report Type: Spontaneous
  Country: US (occurrence: US)
  Receive Date: 20170106
  Receipt Date: 20170106
  Transmission Date: 20170428
  Serious: Yes (Other)
  Sender: FDA-Public Use
  Company Number: US-BAYER-2016-223564

PATIENT
  Sex: Female

DRUGS (2)
  1. BAYER GENUINE ASPIRIN [Suspect]
     Active Substance: ASPIRIN
     Dosage: UNK
  2. MORPHINE [Concomitant]
     Active Substance: MORPHINE

REACTIONS (2)
  - Drug hypersensitivity [Unknown]
  - Gastrointestinal haemorrhage [Unknown]
